FAERS Safety Report 4978122-6 (Version None)
Quarter: 2006Q2

REPORT INFORMATION
  Report Type: 
  Country: None (occurrence: None)
  Receive Date: 20060420
  Receipt Date: 20060301
  Transmission Date: 20061013
  Serious: Yes (Death, Life-Threatening)
  Sender: FDA-Public Use
  Company Number: JP-AVENTIS-200610707JP

PATIENT
  Age: 54 Year
  Sex: Male
  Weight: 62 kg

DRUGS (2)
  1. TAXOTERE [Suspect]
     Indication: OESOPHAGEAL SQUAMOUS CELL CARCINOMA STAGE IV
     Route: 041
     Dates: start: 20050405, end: 20050512
  2. AQUPLA [Concomitant]
     Indication: OESOPHAGEAL SQUAMOUS CELL CARCINOMA STAGE IV
     Route: 041
     Dates: start: 20050405, end: 20050512

REACTIONS (9)
  - BLOOD LACTATE DEHYDROGENASE INCREASED [None]
  - BLOOD PRESSURE DECREASED [None]
  - BLOOD SODIUM DECREASED [None]
  - DRUG INEFFECTIVE [None]
  - HAEMATOCRIT DECREASED [None]
  - HAEMOGLOBIN DECREASED [None]
  - INFECTION [None]
  - OESOPHAGEAL CARCINOMA [None]
  - OESOPHAGEAL PERFORATION [None]
